FAERS Safety Report 14952792 (Version 1)
Quarter: 2018Q2

REPORT INFORMATION
  Report Type: Spontaneous
  Country: DE (occurrence: DE)
  Receive Date: 20180530
  Receipt Date: 20180530
  Transmission Date: 20180711
  Serious: Yes (Other)
  Sender: FDA-Public Use
  Company Number: DE-MYLANLABS-2018M1034176

PATIENT
  Age: 35 Year
  Sex: Female

DRUGS (1)
  1. VENLAFAXINE [Suspect]
     Active Substance: VENLAFAXINE HYDROCHLORIDE
     Indication: DEPRESSION
     Dosage: 150 MG, QD (1-0-0) IN THE MORNING
     Route: 065
     Dates: start: 2010

REACTIONS (5)
  - Condition aggravated [Unknown]
  - Infection [Unknown]
  - Neutropenia [Unknown]
  - Drug ineffective [Unknown]
  - Vitamin B12 deficiency [Unknown]

NARRATIVE: CASE EVENT DATE: 201707
